FAERS Safety Report 16342108 (Version 5)
Quarter: 2019Q2

REPORT INFORMATION
  Report Type: Spontaneous
  Country: PT (occurrence: PT)
  Receive Date: 20190522
  Receipt Date: 20190619
  Transmission Date: 20190711
  Serious: Yes (Death, Hospitalization, Other)
  Sender: FDA-Public Use
  Company Number: PT-PFIZER INC-2019216433

PATIENT
  Age: 68 Year
  Sex: Male

DRUGS (9)
  1. METFORMIN HYDROCHLORIDE. [Suspect]
     Active Substance: METFORMIN HYDROCHLORIDE
     Dosage: UNK
  2. CLOPIDOGREL [Suspect]
     Active Substance: CLOPIDOGREL BISULFATE
     Dosage: UNK
  3. RAMIPRIL. [Suspect]
     Active Substance: RAMIPRIL
     Dosage: UNK
  4. GLICLAZIDE [Suspect]
     Active Substance: GLICLAZIDE
     Dosage: UNK
  5. ACARBOSE. [Suspect]
     Active Substance: ACARBOSE
     Dosage: UNK
  6. ATORVASTATIN CALCIUM. [Suspect]
     Active Substance: ATORVASTATIN CALCIUM
     Dosage: UNK
  7. PANTOPRAZOLE [Suspect]
     Active Substance: PANTOPRAZOLE
     Dosage: UNK
  8. VILDAGLIPTIN [Suspect]
     Active Substance: VILDAGLIPTIN
     Dosage: UNK
  9. ALPRAZOLAM. [Suspect]
     Active Substance: ALPRAZOLAM
     Dosage: UNK

REACTIONS (9)
  - Aphasia [Fatal]
  - Blood pressure increased [Fatal]
  - Hemiparesis [Fatal]
  - Nervous system disorder [Fatal]
  - Monoparesis [Fatal]
  - Speech disorder [Fatal]
  - Quadriplegia [Fatal]
  - Cerebrovascular accident [Fatal]
  - Chest pain [Fatal]

NARRATIVE: CASE EVENT DATE: 20180327
